FAERS Safety Report 7531802-0 (Version None)
Quarter: 2011Q2

REPORT INFORMATION
  Report Type: 
  Country: None (occurrence: None)
  Receive Date: 20110608
  Receipt Date: 20110524
  Transmission Date: 20111010
  Serious: No
  Sender: FDA-Public Use
  Company Number: US-B.I. PHARMACEUTICALS,INC./RIDGEFIELD-2011-BP-10878BP

PATIENT
  Sex: Male

DRUGS (9)
  1. LORAZEPAM [Concomitant]
  2. CARTIZ [Concomitant]
     Dosage: 360 MG
  3. CO Q10 [Concomitant]
     Dosage: 200 MG
  4. SUPER OMEGA 2 [Concomitant]
  5. WARFARIN SODIUM [Concomitant]
     Dosage: 5 MG
  6. VITAMIN B COMPLEX CAP [Concomitant]
  7. MAGNESIUM SULFATE [Concomitant]
  8. PRADAXA [Suspect]
     Indication: ATRIAL FIBRILLATION
     Dosage: 300 MG
     Route: 048
     Dates: start: 20110101
  9. PQQ CAPS [Concomitant]

REACTIONS (4)
  - PRURITUS [None]
  - FLATULENCE [None]
  - DIARRHOEA [None]
  - ERYTHEMA [None]
